FAERS Safety Report 20466503 (Version 1)
Quarter: 2022Q1

REPORT INFORMATION
  Report Type: Spontaneous
  Country: None (occurrence: US)
  Receive Date: 20220213
  Receipt Date: 20220213
  Transmission Date: 20220424
  Serious: Yes (Disabling)
  Sender: FDA-Public Use
  Company Number: US-Nostrum Laboratories, Inc.-2125846

PATIENT
  Sex: Male

DRUGS (2)
  1. CARISOPRODOL [Suspect]
     Active Substance: CARISOPRODOL
     Indication: Back pain
     Route: 048
  2. ALPRAZOLAM [Interacting]
     Active Substance: ALPRAZOLAM
     Route: 048

REACTIONS (1)
  - Labelled drug-drug interaction issue [Recovering/Resolving]
